FAERS Safety Report 5356128-5 (Version None)
Quarter: 2007Q2

REPORT INFORMATION
  Report Type: 
  Country: None (occurrence: None)
  Receive Date: 20070613
  Receipt Date: 20070601
  Transmission Date: 20071010
  Serious: Yes (Hospitalization)
  Sender: FDA-Public Use
  Company Number: AU-BOEHRINGER INGELHEIM PHARMACEUTICALS, INC.-2007-BP-07488AU

PATIENT
  Sex: Female

DRUGS (6)
  1. MICARDIS HCT [Suspect]
     Indication: ESSENTIAL HYPERTENSION
     Dosage: 80/12.5 MG/MG
     Route: 048
  2. CLOPIDOGREL [Concomitant]
  3. OXYBUTYNIN CHLORIDE [Concomitant]
  4. OXAZEPAM [Concomitant]
  5. PROCHLORPERAZINE [Concomitant]
  6. PARACETAMOL [Concomitant]

REACTIONS (5)
  - CONFUSIONAL STATE [None]
  - DYSKINESIA [None]
  - HEADACHE [None]
  - LOSS OF CONSCIOUSNESS [None]
  - PALLOR [None]
